FAERS Safety Report 19149777 (Version 7)
Quarter: 2021Q4

REPORT INFORMATION
  Report Type: Spontaneous
  Country: US (occurrence: US)
  Receive Date: 20210416
  Receipt Date: 20211116
  Transmission Date: 20220303
  Serious: No
  Sender: FDA-Public Use
  Company Number: US-BRISTOL-MYERS SQUIBB COMPANY-BMS-2021-037006

PATIENT
  Age: 13 Year
  Sex: Female

DRUGS (14)
  1. ORENCIA [Suspect]
     Active Substance: ABATACEPT
     Indication: Dermatomyositis
     Dosage: 87.5MG/0.7ML, QWK
     Route: 058
     Dates: start: 20200610
  2. ORENCIA [Suspect]
     Active Substance: ABATACEPT
     Indication: Dermatomyositis
     Dosage: 87.5MG/0.7ML, QWK
     Route: 058
     Dates: start: 20200610
  3. ORENCIA [Suspect]
     Active Substance: ABATACEPT
     Dosage: UNK
     Route: 065
     Dates: start: 202104
  4. ORENCIA [Suspect]
     Active Substance: ABATACEPT
     Dosage: UNK
     Route: 065
     Dates: start: 202104
  5. ORENCIA [Suspect]
     Active Substance: ABATACEPT
     Dosage: 87.5 MILLIGRAM, QWK
     Route: 058
     Dates: start: 202004
  6. ORENCIA [Suspect]
     Active Substance: ABATACEPT
     Dosage: 87.5 MILLIGRAM, QWK
     Route: 058
     Dates: start: 202004
  7. HIZENTRA [Suspect]
     Active Substance: HUMAN IMMUNOGLOBULIN G
     Indication: Dermatomyositis
     Dosage: UNK
     Route: 058
     Dates: start: 202101
  8. IMMUNE GLOBULIN NOS [Suspect]
     Active Substance: IMMUNE GLOBULIN NOS
     Indication: Product used for unknown indication
     Dosage: UNK UNK, QMO
     Route: 042
     Dates: start: 202010, end: 202101
  9. MYCOPHENOLIC ACID [Concomitant]
     Active Substance: MYCOPHENOLIC ACID
     Indication: Dermatomyositis
     Dosage: 1000 MILLIGRAM, BID
     Route: 048
  10. PREDNISONE [Concomitant]
     Active Substance: PREDNISONE
     Indication: Product used for unknown indication
     Dosage: 10 MILLIGRAM, QD
     Route: 048
  11. PREDNISONE [Concomitant]
     Active Substance: PREDNISONE
     Dosage: UNK
     Route: 065
     Dates: start: 201911
  12. FOLIC ACID [Concomitant]
     Active Substance: FOLIC ACID
     Indication: Product used for unknown indication
     Dosage: 1 MILLIGRAM, QD
     Route: 048
  13. METHOTREXATE [Concomitant]
     Active Substance: METHOTREXATE
     Indication: Product used for unknown indication
     Dosage: 25 MILLIGRAM, TID
     Route: 058
     Dates: start: 201911
  14. CELLCEPT [Concomitant]
     Active Substance: MYCOPHENOLATE MOFETIL\MYCOPHENOLATE MOFETIL HYDROCHLORIDE
     Indication: Product used for unknown indication
     Dosage: 1000 MILLIGRAM
     Route: 048
     Dates: start: 201912

REACTIONS (5)
  - Pruritus [Unknown]
  - Headache [Recovering/Resolving]
  - Swelling [Unknown]
  - Intentional product use issue [Unknown]
  - Pain [Unknown]
